FAERS Safety Report 24422330 (Version 1)
Quarter: 2024Q4

REPORT INFORMATION
  Report Type: Spontaneous
  Country: RO (occurrence: RO)
  Receive Date: 20241010
  Receipt Date: 20241010
  Transmission Date: 20250115
  Serious: Yes (Other)
  Sender: BRISTOL MYERS SQUIBB
  Company Number: RO-BRISTOL-MYERS SQUIBB COMPANY-2024-085293

PATIENT
  Age: 49 Year
  Sex: Male

DRUGS (11)
  1. NIVOLUMAB [Suspect]
     Active Substance: NIVOLUMAB
     Indication: Bronchial neoplasm
     Dates: start: 202310
  2. IPILIMUMAB [Suspect]
     Active Substance: IPILIMUMAB
     Indication: Bronchial neoplasm
     Dates: start: 202310
  3. PACLITAXEL [Suspect]
     Active Substance: PACLITAXEL
     Indication: Bronchial neoplasm
     Dates: start: 202310
  4. CARBOPLATIN [Suspect]
     Active Substance: CARBOPLATIN
     Indication: Bronchial neoplasm
     Dates: start: 202310
  5. ASPIRIN [Concomitant]
     Active Substance: ASPIRIN
     Indication: Product used for unknown indication
  6. TICAGRELOR [Concomitant]
     Active Substance: TICAGRELOR
     Indication: Product used for unknown indication
  7. ZOMEN [Concomitant]
     Indication: Product used for unknown indication
  8. DAPAGLIFLOZIN [Concomitant]
     Active Substance: DAPAGLIFLOZIN
     Indication: Product used for unknown indication
  9. METOPROLOL TARTRATE [Concomitant]
     Active Substance: METOPROLOL TARTRATE
     Indication: Product used for unknown indication
  10. NITROPECTOR [Concomitant]
     Indication: Product used for unknown indication
  11. ATORVASTATIN CALCIUM [Concomitant]
     Active Substance: ATORVASTATIN CALCIUM
     Indication: Product used for unknown indication

REACTIONS (5)
  - Rash [Recovered/Resolved]
  - Diarrhoea [Recovered/Resolved]
  - Weight increased [Unknown]
  - Thyroid disorder [Unknown]
  - Ischaemic cardiomyopathy [Unknown]

NARRATIVE: CASE EVENT DATE: 20231001
